FAERS Safety Report 5212314-6 (Version None)
Quarter: 2006Q4

REPORT INFORMATION
  Report Type: 
  Country: None (occurrence: None)
  Receive Date: 20061130
  Receipt Date: 20060327
  Transmission Date: 20070319
  Serious: Yes (Other)
  Sender: FDA-Public Use
  Company Number: WAES 0603USA04109

PATIENT
  Age: 72 Year
  Sex: Female
  Weight: 49.8957 kg

DRUGS (3)
  1. FOSAMAX [Suspect]
     Indication: OSTEOPOROSIS
     Dosage: PO
     Route: 048
     Dates: start: 20010101
  2. AVANDIA [Concomitant]
  3. CRESTOR [Concomitant]

REACTIONS (1)
  - OSTEONECROSIS [None]
